FAERS Safety Report 6613569-3 (Version None)
Quarter: 2010Q1

REPORT INFORMATION
  Report Type: 
  Country: None (occurrence: None)
  Receive Date: 20100225
  Receipt Date: 20100212
  Transmission Date: 20100710
  Serious: Yes (Hospitalization)
  Sender: FDA-Public Use
  Company Number: 2009SP017659

PATIENT
  Age: 27 Year
  Sex: Female
  Weight: 63.5036 kg

DRUGS (1)
  1. NUVARING [Suspect]
     Indication: CONTRACEPTION
     Dosage: 1 DF;QM;VAG
     Route: 067
     Dates: start: 20050601, end: 20061001

REACTIONS (6)
  - ABORTION SPONTANEOUS [None]
  - CHEST PAIN [None]
  - CYST [None]
  - DRUG EXPOSURE DURING PREGNANCY [None]
  - MIGRAINE [None]
  - POLYP [None]
